FAERS Safety Report 16596270 (Version 3)
Quarter: 2020Q3

REPORT INFORMATION
  Report Type: Spontaneous
  Country: US (occurrence: US)
  Receive Date: 20190719
  Receipt Date: 20200928
  Transmission Date: 20201102
  Serious: Yes (Other)
  Sender: FDA-Public Use
  Company Number: US-GILEAD-2019-0418471

PATIENT
  Age: 42 Year
  Sex: Male
  Weight: 79.37 kg

DRUGS (26)
  1. ACYCLOVIR [ACICLOVIR] [Concomitant]
     Active Substance: ACYCLOVIR
  2. PREZISTA [Concomitant]
     Active Substance: DARUNAVIR ETHANOLATE
  3. ADEMPAS [Concomitant]
     Active Substance: RIOCIGUAT
  4. DAPSONE. [Concomitant]
     Active Substance: DAPSONE
  5. ASPIRIN 81 [Concomitant]
     Active Substance: ASPIRIN
  6. CEFTAZIDIME. [Concomitant]
     Active Substance: CEFTAZIDIME
  7. NOVIR [ENTECAVIR] [Concomitant]
  8. MOBIC [Concomitant]
     Active Substance: MELOXICAM
  9. CORTIZONE [HYDROCORTISONE] [Concomitant]
     Active Substance: HYDROCORTISONE
  10. VALACYCLOVIR [Concomitant]
     Active Substance: VALACYCLOVIR HYDROCHLORIDE
  11. AMOXICILLIN. [Concomitant]
     Active Substance: AMOXICILLIN
  12. VELETRI [Concomitant]
     Active Substance: EPOPROSTENOL
  13. TRUVADA [Suspect]
     Active Substance: EMTRICITABINE\TENOFOVIR DISOPROXIL FUMARATE
     Indication: HIV INFECTION
     Dosage: UNK
     Route: 048
     Dates: start: 2010, end: 2019
  14. ATRIPLA [Suspect]
     Active Substance: EFAVIRENZ\EMTRICITABINE\TENOFOVIR DISOPROXIL FUMARATE
     Indication: HIV INFECTION
     Dosage: UNK
     Route: 048
     Dates: start: 2011, end: 20121128
  15. ACETAMINOPHEN. [Concomitant]
     Active Substance: ACETAMINOPHEN
  16. LASIX [Concomitant]
     Active Substance: FUROSEMIDE
  17. LETAIRIS [Concomitant]
     Active Substance: AMBRISENTAN
  18. COREG [Concomitant]
     Active Substance: CARVEDILOL
  19. PREDNISONE. [Concomitant]
     Active Substance: PREDNISONE
  20. SUSTIVA [Concomitant]
     Active Substance: EFAVIRENZ
  21. LISINOPRIL. [Concomitant]
     Active Substance: LISINOPRIL
  22. DOXYCYCLINE HYCLATE. [Concomitant]
     Active Substance: DOXYCYCLINE HYCLATE
  23. TRAMADOL. [Concomitant]
     Active Substance: TRAMADOL
  24. BACTRIM [Concomitant]
     Active Substance: SULFAMETHOXAZOLE\TRIMETHOPRIM
  25. CUBICIN [Concomitant]
     Active Substance: DAPTOMYCIN
  26. OXYCODONE [Concomitant]
     Active Substance: OXYCODONE

REACTIONS (10)
  - Pain [Not Recovered/Not Resolved]
  - Anxiety [Not Recovered/Not Resolved]
  - Anhedonia [Not Recovered/Not Resolved]
  - Chronic kidney disease [Not Recovered/Not Resolved]
  - Renal failure [Not Recovered/Not Resolved]
  - Emotional distress [Not Recovered/Not Resolved]
  - Acute kidney injury [Unknown]
  - Nephrolithiasis [Unknown]
  - Economic problem [Not Recovered/Not Resolved]
  - Proteinuria [Unknown]

NARRATIVE: CASE EVENT DATE: 20120805
